FAERS Safety Report 14596370 (Version 1)
Quarter: 2018Q1

REPORT INFORMATION
  Report Type: Spontaneous
  Country: IT (occurrence: IT)
  Receive Date: 20180303
  Receipt Date: 20180303
  Transmission Date: 20180509
  Serious: Yes (Hospitalization)
  Sender: FDA-Public Use
  Company Number: IT-AUROBINDO-AUR-APL-2018-010999

PATIENT
  Age: 73 Year
  Sex: Female

DRUGS (1)
  1. METFORMIN [Suspect]
     Active Substance: METFORMIN HYDROCHLORIDE
     Indication: TYPE 2 DIABETES MELLITUS
     Dosage: 2 GRAM, ONCE A DAY

REACTIONS (11)
  - Lactic acidosis [Recovering/Resolving]
  - Blood creatinine increased [Unknown]
  - Diarrhoea [Recovering/Resolving]
  - Dyspnoea [Recovering/Resolving]
  - Disorientation [Recovering/Resolving]
  - Anuria [Unknown]
  - Oliguria [Unknown]
  - Hypotension [Unknown]
  - Decreased appetite [Recovering/Resolving]
  - Acute kidney injury [Unknown]
  - Asthenia [Recovering/Resolving]
